FAERS Safety Report 19994834 (Version 4)
Quarter: 2022Q1

REPORT INFORMATION
  Report Type: Spontaneous
  Country: BE (occurrence: BE)
  Receive Date: 20211026
  Receipt Date: 20220104
  Transmission Date: 20220423
  Serious: Yes (Death, Hospitalization, Other)
  Sender: FDA-Public Use
  Company Number: BE-ACCORD-205254

PATIENT
  Age: 54 Year
  Sex: Male

DRUGS (7)
  1. TEMOZOLOMIDE [Suspect]
     Active Substance: TEMOZOLOMIDE
     Indication: Glioblastoma
     Dosage: 150 MILLIGRAM/SQ. METER, FIRST CYCLE
     Route: 048
  2. TEMOZOLOMIDE [Suspect]
     Active Substance: TEMOZOLOMIDE
     Dosage: 200 MILLIGRAM/SQ.METER
     Route: 048
  3. TEMOZOLOMIDE [Suspect]
     Active Substance: TEMOZOLOMIDE
     Dosage: 200 MILLIGRAM/SQ. METER, SUBSEQUENT CYCLES
     Route: 048
     Dates: start: 2017, end: 20170920
  4. TEMOZOLOMIDE [Suspect]
     Active Substance: TEMOZOLOMIDE
     Dosage: 160 MILLIGRAM, QD
     Route: 048
     Dates: start: 20170117
  5. TEMOZOLOMIDE [Suspect]
     Active Substance: TEMOZOLOMIDE
     Dosage: 150 MG/M2, IN THE FIRST CYCLE, 6 PLANNED CYCLES
     Route: 048
     Dates: start: 2017, end: 2017
  6. TEMOZOLOMIDE [Suspect]
     Active Substance: TEMOZOLOMIDE
     Dosage: UNK, (5 DAYS/28, 150 AND 200 MG/M2 IN THE FIRST AND SUBSEQUENT CYCLES, RESPECTIVELY)
     Route: 048
     Dates: start: 20180514
  7. TEMOZOLOMIDE [Suspect]
     Active Substance: TEMOZOLOMIDE
     Dosage: 160 MILLIGRAM, QD, DOSAGE DURING CHEMORADIOTHERAPY
     Route: 048

REACTIONS (4)
  - Disease recurrence [Fatal]
  - Diabetes insipidus [Recovered/Resolved]
  - Glioblastoma [Unknown]
  - Malignant neoplasm progression [Unknown]

NARRATIVE: CASE EVENT DATE: 20170201
